FAERS Safety Report 8425932-9 (Version None)
Quarter: 2012Q2

REPORT INFORMATION
  Report Type: 
  Country: None (occurrence: None)
  Receive Date: 20120611
  Receipt Date: 20120604
  Transmission Date: 20120825
  Serious: Yes (Other)
  Sender: FDA-Public Use
  Company Number: US-BAYER-2012-055832

PATIENT
  Sex: Female

DRUGS (4)
  1. DROSPIRENONE AND ETHINYL ESTRADIOL [Suspect]
     Dosage: UNK
     Dates: start: 20090901
  2. DROSPIRENONE AND ETHINYL ESTRADIOL [Suspect]
     Dosage: UNK
     Dates: start: 20080701
  3. YAZ [Suspect]
     Dosage: UNK
     Dates: start: 20090701
  4. YASMIN [Suspect]
     Dosage: UNK
     Dates: start: 20040101

REACTIONS (3)
  - INJURY [None]
  - GALLBLADDER INJURY [None]
  - PAIN [None]
